FAERS Safety Report 22361103 (Version 2)
Quarter: 2023Q4

REPORT INFORMATION
  Report Type: Spontaneous
  Country: US (occurrence: US)
  Receive Date: 20230524
  Receipt Date: 20231006
  Transmission Date: 20240110
  Serious: Yes (Other)
  Sender: FDA-Public Use
  Company Number: US-SUN PHARMACEUTICAL INDUSTRIES LTD-2023R1-389610

PATIENT
  Age: 65 Year
  Sex: Male

DRUGS (4)
  1. BACLOFEN [Suspect]
     Active Substance: BACLOFEN
     Indication: Brachial plexopathy
     Dosage: 60 MILLIGRAM, DAILY
     Route: 065
  2. LEVETIRACETAM [Suspect]
     Active Substance: LEVETIRACETAM
     Indication: Brachial plexopathy
     Dosage: 3000 MILLIGRAM, DAILY
     Route: 065
  3. CARBAMAZEPINE [Suspect]
     Active Substance: CARBAMAZEPINE
     Indication: Brachial plexopathy
     Dosage: 1200 MILLIGRAM, DAILY
     Route: 065
  4. CARBAMAZEPINE [Suspect]
     Active Substance: CARBAMAZEPINE
     Indication: Myokymia

REACTIONS (1)
  - Drug ineffective [Not Recovered/Not Resolved]
